FAERS Safety Report 9170464 (Version 1)
Quarter: 2013Q1

REPORT INFORMATION
  Report Type: Spontaneous
  Country: US (occurrence: None)
  Receive Date: 20130315
  Receipt Date: 20130315
  Transmission Date: 20140127
  Serious: Yes (Death)
  Sender: FDA-Public Use
  Company Number: None

PATIENT
  Age: 81 Year
  Sex: Male
  Weight: 48.54 kg

DRUGS (1)
  1. ARANESP INJECTION [Suspect]
     Indication: NEPHROGENIC ANAEMIA

REACTIONS (2)
  - Blood pressure increased [None]
  - Anastomotic leak [None]
